FAERS Safety Report 24590360 (Version 2)
Quarter: 2025Q1

REPORT INFORMATION
  Report Type: Report from Study
  Country: CA (occurrence: CA)
  Receive Date: 20241107
  Receipt Date: 20250123
  Transmission Date: 20250408
  Serious: Yes (Hospitalization)
  Sender: PFIZER
  Company Number: CA-PFIZER INC-202400294734

PATIENT
  Age: 26 Year
  Sex: Female

DRUGS (15)
  1. ATIVAN [Interacting]
     Active Substance: LORAZEPAM
     Route: 065
  2. CLOBAZAM [Interacting]
     Active Substance: CLOBAZAM
     Route: 065
  3. DIVALPROEX SODIUM [Interacting]
     Active Substance: DIVALPROEX SODIUM
     Route: 065
  4. DIVALPROEX SODIUM [Interacting]
     Active Substance: DIVALPROEX SODIUM
     Dosage: 500 MG, 2X/DAY
     Route: 065
  5. LEVETIRACETAM [Interacting]
     Active Substance: LEVETIRACETAM
     Route: 065
  6. LEVETIRACETAM [Interacting]
     Active Substance: LEVETIRACETAM
     Dosage: 1500 MG, 2X/DAY
     Route: 065
  7. NAPROXEN [Interacting]
     Active Substance: NAPROXEN
  8. XCOPRI [Interacting]
     Active Substance: CENOBAMATE
     Indication: Epilepsy
     Dosage: 25 MG, 1X/DAY
     Route: 048
  9. XCOPRI [Interacting]
     Active Substance: CENOBAMATE
     Indication: Partial seizures
     Dosage: 12.5 MG, 1X/DAY
     Route: 048
  10. XCOPRI [Interacting]
     Active Substance: CENOBAMATE
     Dosage: 150 MG, 1X/DAY
     Route: 048
  11. XCOPRI [Interacting]
     Active Substance: CENOBAMATE
     Dosage: UNK UNK, 1X/DAY
     Route: 048
  12. XCOPRI [Interacting]
     Active Substance: CENOBAMATE
     Dosage: 50 MG, 1X/DAY
     Route: 048
  13. XCOPRI [Interacting]
     Active Substance: CENOBAMATE
     Dosage: 100 MG, 1X/DAY
     Route: 048
  14. XCOPRI [Interacting]
     Active Substance: CENOBAMATE
     Dosage: 150 MG, 1X/DAY
     Route: 048
  15. XCOPRI [Interacting]
     Active Substance: CENOBAMATE
     Dosage: 200 MG, 1X/DAY
     Route: 048

REACTIONS (8)
  - Overdose [Unknown]
  - Drug level increased [Unknown]
  - Dysarthria [Unknown]
  - Dysstasia [Unknown]
  - Accidental overdose [Unknown]
  - Dizziness [Unknown]
  - Drug interaction [Unknown]
  - Intentional dose omission [Unknown]
